FAERS Safety Report 8983948 (Version 1)
Quarter: 2012Q4

REPORT INFORMATION
  Report Type: Spontaneous
  Country: US (occurrence: None)
  Receive Date: 20121218
  Receipt Date: 20121218
  Transmission Date: 20130627
  Serious: Yes (Life-Threatening, Hospitalization)
  Sender: FDA-Public Use
  Company Number: None

PATIENT
  Age: 71 Year
  Sex: Male
  Weight: 103.87 kg

DRUGS (9)
  1. IMIQUIMOD [Suspect]
     Route: 061
     Dates: start: 20120705, end: 20120815
  2. LEVOTHYROXINE [Concomitant]
  3. DOXAZOSIN [Concomitant]
  4. PLAVIX [Concomitant]
  5. ASPIRIN [Concomitant]
  6. CETAPHIL DAILY [Concomitant]
  7. CERAVE LOTION [Concomitant]
  8. VITAMIN D [Concomitant]
  9. OCUVITE VITAMIN [Concomitant]

REACTIONS (2)
  - Dyspnoea [None]
  - Cardiac disorder [None]
